FAERS Safety Report 6684398-X (Version None)
Quarter: 2010Q2

REPORT INFORMATION
  Report Type: 
  Country: None (occurrence: None)
  Receive Date: 20100416
  Receipt Date: 20100408
  Transmission Date: 20101027
  Serious: Yes (Hospitalization)
  Sender: FDA-Public Use
  Company Number: US-BAYER-201012631NA

PATIENT
  Age: 60 Year
  Sex: Male
  Weight: 93 kg

DRUGS (17)
  1. SORAFENIB [Suspect]
     Indication: SMALL CELL LUNG CANCER EXTENSIVE STAGE
     Dosage: TOTAL DAILY DOSE: 200 MG  UNIT DOSE: 200 MG
     Route: 048
     Dates: start: 20100208, end: 20100219
  2. SORAFENIB [Suspect]
     Dosage: TOTAL DAILY DOSE: 400 MG  UNIT DOSE: 200 MG
     Route: 048
     Dates: start: 20100118
  3. CISPLATIN [Suspect]
     Indication: SMALL CELL LUNG CANCER EXTENSIVE STAGE
     Dosage: Q 3 WEEKS
     Route: 042
     Dates: start: 20100118
  4. CISPLATIN [Suspect]
     Route: 042
     Dates: start: 20100208
  5. ETOPOSIDE [Suspect]
     Indication: SMALL CELL LUNG CANCER EXTENSIVE STAGE
     Dosage: DAYS 1-3
     Route: 042
     Dates: start: 20100208, end: 20100210
  6. ETOPOSIDE [Suspect]
     Dosage: DAYS 1-3, Q 3 WEEKS
     Route: 042
     Dates: start: 20100118, end: 20100120
  7. FAMOTIDINE [Concomitant]
     Dosage: TOTAL DAILY DOSE: 20 MG  UNIT DOSE: 20 MG
  8. SIMETHICONE [Concomitant]
     Dosage: UNIT DOSE: 80 MG
  9. APREPITANT [Concomitant]
     Dosage: TOTAL DAILY DOSE: 80 MG  UNIT DOSE: 80 MG
  10. APREPITANT [Concomitant]
     Dosage: TOTAL DAILY DOSE: 125 MG  UNIT DOSE: 125 MG
  11. APREPITANT [Concomitant]
     Dosage: TOTAL DAILY DOSE: 80 MG  UNIT DOSE: 80 MG
     Dates: start: 20100119, end: 20100120
  12. APREPITANT [Concomitant]
     Dosage: TOTAL DAILY DOSE: 80 MG  UNIT DOSE: 80 MG
  13. PROCHLORPERAZINE MALEATE [Concomitant]
     Indication: NAUSEA
     Dosage: TAKE 1 TABLET EVERY 4-6 HOURS AS NEEDED FOR NAUSEA
  14. LORAZEPAM [Concomitant]
     Dosage: TOTAL DAILY DOSE: 3 MG  UNIT DOSE: 1 MG
  15. ATENOLOL [Concomitant]
     Dosage: TOTAL DAILY DOSE: 50 MG  UNIT DOSE: 50 MG
  16. NORVASC [Concomitant]
     Dosage: TOTAL DAILY DOSE: 5 MG
  17. DULOXETINE HYDROCHLORIDE [Concomitant]
     Dosage: TOTAL DAILY DOSE: 20 MG

REACTIONS (4)
  - ATRIAL FIBRILLATION [None]
  - BLOOD CREATININE INCREASED [None]
  - DEHYDRATION [None]
  - GLOMERULAR FILTRATION RATE DECREASED [None]
